FAERS Safety Report 13277129 (Version 1)
Quarter: 2017Q1

REPORT INFORMATION
  Report Type: Spontaneous
  Country: JP (occurrence: JP)
  Receive Date: 20170228
  Receipt Date: 20170228
  Transmission Date: 20170428
  Serious: Yes (Hospitalization, Other)
  Sender: FDA-Public Use
  Company Number: JP-PFIZER INC-2017084380

PATIENT
  Age: 70 Year
  Sex: Male

DRUGS (4)
  1. LEVOFOLINATE [Suspect]
     Active Substance: LEVOLEUCOVORIN CALCIUM
     Indication: RECTAL CANCER
     Dosage: UNK, ONCE A DAY
     Route: 041
  2. CAMPTO [Suspect]
     Active Substance: IRINOTECAN
     Indication: RECTAL CANCER
     Dosage: UNK, ONCE A DAY
     Route: 041
  3. 5-FU [Concomitant]
     Active Substance: FLUOROURACIL
     Indication: RECTAL CANCER
     Dosage: UNK
  4. AVASTIN [Concomitant]
     Active Substance: BEVACIZUMAB
     Dosage: UNK

REACTIONS (7)
  - Hydronephrosis [Unknown]
  - Proteinuria [Unknown]
  - Small intestinal obstruction [Unknown]
  - Renal impairment [Unknown]
  - Large intestinal obstruction [Unknown]
  - Anastomotic stenosis [Unknown]
  - Cholecystitis acute [Unknown]
